FAERS Safety Report 7789892-6 (Version None)
Quarter: 2011Q3

REPORT INFORMATION
  Report Type: 
  Country: None (occurrence: None)
  Receive Date: 20110930
  Receipt Date: 20110308
  Transmission Date: 20111222
  Serious: Yes (Other)
  Sender: FDA-Public Use
  Company Number: US-ASTRAZENECA-2011SE13103

PATIENT
  Age: 67 Year

DRUGS (1)
  1. ANASTROZOLE [Suspect]
     Route: 048

REACTIONS (4)
  - HEADACHE [None]
  - RECURRENT CANCER [None]
  - AURA [None]
  - ADVERSE DRUG REACTION [None]
